FAERS Safety Report 13988575 (Version 2)
Quarter: 2017Q4

REPORT INFORMATION
  Report Type: Report from Study
  Country: NO (occurrence: NO)
  Receive Date: 20170919
  Receipt Date: 20171109
  Transmission Date: 20180321
  Serious: Yes (Life-Threatening, Disabling)
  Sender: FDA-Public Use
  Company Number: NO-CELGENEUS-NOR-20170507384

PATIENT
  Sex: Female

DRUGS (3)
  1. CYTARABIN [Suspect]
     Active Substance: CYTARABINE
     Indication: PRODUCT USED FOR UNKNOWN INDICATION
     Dosage: 3520 MILLIGRAM
     Route: 065
     Dates: start: 20170331
  2. DAUNORUBICIN [Suspect]
     Active Substance: DAUNORUBICIN
     Indication: PRODUCT USED FOR UNKNOWN INDICATION
     Dosage: 105 MILLIGRAM
     Route: 065
     Dates: start: 20170331
  3. REVLIMID [Suspect]
     Active Substance: LENALIDOMIDE
     Indication: PRODUCT USED FOR UNKNOWN INDICATION
     Dosage: 15 MILLIGRAM
     Route: 048
     Dates: start: 20170331, end: 20170411

REACTIONS (4)
  - Sepsis [Recovered/Resolved]
  - Hypokalaemia [Recovered/Resolved]
  - Skin bacterial infection [Recovered/Resolved]
  - Eye infection bacterial [Recovered/Resolved]

NARRATIVE: CASE EVENT DATE: 20170411
